FAERS Safety Report 13333693 (Version 3)
Quarter: 2017Q2

REPORT INFORMATION
  Report Type: Report from Study
  Country: CO (occurrence: CO)
  Receive Date: 20170314
  Receipt Date: 20170531
  Transmission Date: 20170830
  Serious: Yes (Death, Other)
  Sender: FDA-Public Use
  Company Number: CO-AMGEN-COLSL2017036952

PATIENT
  Age: 59 Year
  Sex: Female

DRUGS (1)
  1. MIMPARA [Suspect]
     Active Substance: CINACALCET HYDROCHLORIDE
     Indication: HYPERPARATHYROIDISM SECONDARY
     Dosage: 30 MG, QD
     Route: 048
     Dates: start: 20170202, end: 20170405

REACTIONS (4)
  - Contusion [Not Recovered/Not Resolved]
  - Haematemesis [Not Recovered/Not Resolved]
  - Coagulation time prolonged [Not Recovered/Not Resolved]
  - Sudden death [Fatal]

NARRATIVE: CASE EVENT DATE: 20170306
